FAERS Safety Report 4335294-4 (Version None)
Quarter: 2004Q2

REPORT INFORMATION
  Report Type: 
  Country: None (occurrence: None)
  Receive Date: 20040408
  Receipt Date: 20040408
  Transmission Date: 20050107
  Serious: Yes (Hospitalization)
  Sender: FDA-Public Use
  Company Number: None

PATIENT
  Age: 79 Year
  Sex: Male
  Weight: 56.6 kg

DRUGS (1)
  1. CLARITHROMYCIN [Suspect]
     Dosage: 1000 MG, 500 MG BID, ORAL
     Route: 048
     Dates: start: 20031204, end: 20031208

REACTIONS (1)
  - RASH [None]
